FAERS Safety Report 12599999 (Version 2)
Quarter: 2016Q3

REPORT INFORMATION
  Report Type: Spontaneous
  Country: BR (occurrence: BR)
  Receive Date: 20160727
  Receipt Date: 20160805
  Transmission Date: 20161109
  Serious: Yes (Hospitalization)
  Sender: FDA-Public Use
  Company Number: BR-PFIZER INC-2016354593

PATIENT
  Age: 79 Year
  Sex: Male
  Weight: 90 kg

DRUGS (4)
  1. DETRIXIN [Concomitant]
     Dosage: UNK
  2. NORVASC [Suspect]
     Active Substance: AMLODIPINE BESYLATE
     Indication: HYPERTENSION
     Dosage: 5 MG, 1X/DAY
     Route: 048
     Dates: start: 2011, end: 20160404
  3. OLMETEC HCT [Suspect]
     Active Substance: HYDROCHLOROTHIAZIDE\OLMESARTAN MEDOXOMIL
     Indication: HYPERTENSION
     Dosage: 40MG/ 25MG, 1X/DAY
     Route: 048
     Dates: start: 2011, end: 20160404
  4. SIMVASTATIN. [Concomitant]
     Active Substance: SIMVASTATIN
     Indication: BLOOD CHOLESTEROL ABNORMAL
     Dosage: 1 TABLET, DAILY
     Route: 048
     Dates: start: 2011

REACTIONS (8)
  - Cerebrovascular accident [Unknown]
  - Decubitus ulcer [Unknown]
  - Weight decreased [Unknown]
  - Pneumonia aspiration [Unknown]
  - Infected skin ulcer [Unknown]
  - Hemiplegia [Unknown]
  - Asthenia [Unknown]
  - Faeces soft [Unknown]

NARRATIVE: CASE EVENT DATE: 2016
